FAERS Safety Report 5389816-5 (Version None)
Quarter: 2007Q3

REPORT INFORMATION
  Report Type: 
  Country: None (occurrence: None)
  Receive Date: 20070718
  Receipt Date: 20070711
  Transmission Date: 20080115
  Serious: Yes (Other)
  Sender: FDA-Public Use
  Company Number: PHBS2007BR11767

PATIENT
  Age: 63 Year
  Sex: Male
  Weight: 71.2 kg

DRUGS (4)
  1. FORASEQ [Suspect]
     Indication: EMPHYSEMA
     Dosage: UNK, Q12H
  2. CHLORTHALIDONE [Concomitant]
     Indication: HYPERTENSION
     Dosage: 1 TAB/DAY
     Route: 048
  3. CAPTOPRIL [Concomitant]
     Indication: HYPERTENSION
     Dosage: 25 MG, Q12H
     Route: 048
  4. LORAZEPAM [Concomitant]
     Dosage: 1 MG/DAY
     Route: 048

REACTIONS (5)
  - AGITATION [None]
  - FEAR [None]
  - INSOMNIA [None]
  - RIB FRACTURE [None]
  - ROAD TRAFFIC ACCIDENT [None]
